FAERS Safety Report 8132055-5 (Version None)
Quarter: 2012Q1

REPORT INFORMATION
  Report Type: 
  Country: None (occurrence: None)
  Receive Date: 20120213
  Receipt Date: 20120203
  Transmission Date: 20120608
  Serious: Yes (Death)
  Sender: FDA-Public Use
  Company Number: US-MYLANLABS-2012S1002808

PATIENT
  Age: 40 Year
  Sex: Male
  Weight: 106.6 kg

DRUGS (3)
  1. DIPHENHYDRAMINE HCL [Suspect]
  2. MIRTAZAPINE [Suspect]
  3. FENTANYL-100 [Suspect]
     Route: 062

REACTIONS (1)
  - TOXICITY TO VARIOUS AGENTS [None]
